FAERS Safety Report 4532503-3 (Version None)
Quarter: 2004Q4

REPORT INFORMATION
  Report Type: 
  Country: None (occurrence: None)
  Receive Date: 20041206
  Receipt Date: 20040920
  Transmission Date: 20050328
  Serious: No
  Sender: FDA-Public Use
  Company Number: USA040978675

PATIENT
  Age: 45 Year
  Sex: Female

DRUGS (5)
  1. CYMBALTA [Suspect]
     Indication: DEPRESSION
     Dosage: 30 MG DAY
  2. CIPRO [Concomitant]
  3. TRAZADONE (TRAZODONE) [Concomitant]
  4. PAXIL [Concomitant]
  5. SUBOXONE [Concomitant]

REACTIONS (1)
  - SWOLLEN TONGUE [None]
